FAERS Safety Report 8361604-7 (Version None)
Quarter: 2012Q2

REPORT INFORMATION
  Report Type: 
  Country: None (occurrence: None)
  Receive Date: 20120515
  Receipt Date: 20120513
  Transmission Date: 20120825
  Serious: Yes (Other)
  Sender: FDA-Public Use
  Company Number: US-BAYER-2012-047477

PATIENT
  Age: 48 Year
  Weight: 100 kg

DRUGS (4)
  1. NEXIUM [Concomitant]
  2. LEXAPRO [Concomitant]
  3. NAPROXEN SODIUM [Suspect]
     Dosage: 1 U, ONCE
     Route: 048
     Dates: start: 20120511, end: 20120511
  4. ALLEGRA [Concomitant]

REACTIONS (2)
  - WHEEZING [None]
  - URTICARIA [None]
